FAERS Safety Report 5065562-2 (Version None)
Quarter: 2006Q3

REPORT INFORMATION
  Report Type: 
  Country: None (occurrence: None)
  Receive Date: 20060731
  Receipt Date: 20060720
  Transmission Date: 20061208
  Serious: Yes (Hospitalization, Other)
  Sender: FDA-Public Use
  Company Number: US-ABBOTT-06P-163-0338422-00

PATIENT
  Sex: Female
  Weight: 148 kg

DRUGS (19)
  1. HUMIRA [Suspect]
     Indication: RHEUMATOID ARTHRITIS
     Route: 058
     Dates: start: 20030101, end: 20050101
  2. HUMIRA [Suspect]
     Route: 058
     Dates: start: 20050101, end: 20051101
  3. HUMIRA [Suspect]
     Route: 058
     Dates: start: 20060301, end: 20060401
  4. HUMIRA [Suspect]
     Route: 058
     Dates: start: 20060401, end: 20060501
  5. HUMIRA [Suspect]
     Route: 058
     Dates: start: 20060501
  6. CELECOXIB [Concomitant]
     Indication: RHEUMATOID ARTHRITIS
     Route: 048
  7. PREDNISONE [Concomitant]
     Indication: RHEUMATOID ARTHRITIS
     Route: 048
  8. LANSOPRAZOLE [Concomitant]
     Indication: GASTROOESOPHAGEAL REFLUX DISEASE
     Route: 048
  9. VENLAFAXINE HCL [Concomitant]
     Indication: DEPRESSION
     Route: 048
  10. METOPROLOL [Concomitant]
     Indication: MITRAL VALVE PROLAPSE
     Route: 048
  11. BONIVA [Concomitant]
     Indication: OSTEOPOROSIS
     Route: 048
  12. DEXTROPROPOXYPHENE [Concomitant]
     Indication: PAIN
     Route: 048
  13. FLUTICASONE PROPIONATE [Concomitant]
     Indication: HYPERSENSITIVITY
  14. ROPINIROLE HYDROCHLORIDE [Concomitant]
     Indication: RESTLESS LEGS SYNDROME
     Route: 048
  15. POTASSIUM [Concomitant]
     Indication: VITAMIN SUPPLEMENTATION
     Route: 048
  16. IMITREX [Concomitant]
     Indication: HEADACHE
     Route: 048
  17. CALCIUM GLUCONATE [Concomitant]
     Indication: VITAMIN SUPPLEMENTATION
     Route: 048
  18. NITROFURANTOIN [Concomitant]
     Indication: INFECTION PROPHYLAXIS
     Route: 048
     Dates: start: 20060101
  19. MULTIVITAMIN [Concomitant]
     Indication: VITAMIN SUPPLEMENTATION

REACTIONS (7)
  - CLOSTRIDIAL INFECTION [None]
  - COMA [None]
  - ESCHERICHIA SEPSIS [None]
  - FUNGAL INFECTION [None]
  - PNEUMONIA [None]
  - RESPIRATORY FAILURE [None]
  - URINARY TRACT INFECTION [None]
